FAERS Safety Report 19880527 (Version 8)
Quarter: 2022Q3

REPORT INFORMATION
  Report Type: Report from Study
  Country: CA (occurrence: CA)
  Receive Date: 20210924
  Receipt Date: 20220819
  Transmission Date: 20221027
  Serious: Yes (Death, Hospitalization, Other)
  Sender: FDA-Public Use
  Company Number: CA-OTSUKA-2021_012274

PATIENT
  Age: 60 Year
  Sex: Male

DRUGS (6)
  1. CEDAZURIDINE\DECITABINE [Suspect]
     Active Substance: CEDAZURIDINE\DECITABINE
     Indication: Myelodysplastic syndrome
     Dosage: (35 MG OF DECITABINE AND 100 MG OF CEDAZURIDINE)
     Route: 065
     Dates: start: 20210322
  2. CEDAZURIDINE\DECITABINE [Suspect]
     Active Substance: CEDAZURIDINE\DECITABINE
     Dosage: UNK, QD (1-4 DAYS EVERY 28 DAY CYCLE)
     Route: 065
  3. CEDAZURIDINE\DECITABINE [Suspect]
     Active Substance: CEDAZURIDINE\DECITABINE
     Dosage: UNK, QD (1-3 DAYS EVERY 28 DAY CYCLE)
     Route: 065
  4. CEDAZURIDINE\DECITABINE [Suspect]
     Active Substance: CEDAZURIDINE\DECITABINE
     Dosage: UNK, QD (DAYS 1-4)
     Route: 065
  5. CEDAZURIDINE\DECITABINE [Suspect]
     Active Substance: CEDAZURIDINE\DECITABINE
     Dosage: UNK
     Route: 065
     Dates: start: 20220509
  6. CEDAZURIDINE\DECITABINE [Suspect]
     Active Substance: CEDAZURIDINE\DECITABINE
     Dosage: UNK (3 PILLS PER CYCLE)
     Route: 065

REACTIONS (15)
  - Death [Fatal]
  - Device malfunction [Unknown]
  - Stent placement [Unknown]
  - Diabetic ketoacidosis [Recovering/Resolving]
  - Red blood cell transfusion [Unknown]
  - Blood product transfusion dependent [Unknown]
  - Cardiac pacemaker insertion [Recovering/Resolving]
  - Sepsis [Unknown]
  - Neutropenia [Unknown]
  - Productive cough [Not Recovered/Not Resolved]
  - Influenza [Recovering/Resolving]
  - Vomiting [Unknown]
  - Nausea [Unknown]
  - Product use issue [Unknown]
  - Therapy interrupted [Unknown]

NARRATIVE: CASE EVENT DATE: 20220809
